FAERS Safety Report 5928792-0 (Version None)
Quarter: 2008Q4

REPORT INFORMATION
  Report Type: 
  Country: None (occurrence: None)
  Receive Date: 20081020
  Receipt Date: 20080226
  Transmission Date: 20090506
  Serious: Yes (Hospitalization)
  Sender: FDA-Public Use
  Company Number: 2005-00334FE

PATIENT
  Age: 9 Year
  Sex: Male

DRUGS (4)
  1. MINIRIN [Suspect]
     Indication: ENURESIS
     Dosage: 20 MCG/20 MCG/40 MCG/20 MCG;IN
     Route: 055
     Dates: start: 20050414, end: 20050415
  2. MINIRIN [Suspect]
     Indication: ENURESIS
     Dosage: 20 MCG/20 MCG/40 MCG/20 MCG;IN
     Route: 055
     Dates: start: 20050417, end: 20050417
  3. MINIRIN [Suspect]
     Indication: ENURESIS
     Dosage: 20 MCG/20 MCG/40 MCG/20 MCG;IN
     Route: 055
     Dates: start: 20050419, end: 20050419
  4. MINIRIN [Suspect]
     Indication: ENURESIS
     Dosage: 20 MCG/20 MCG/40 MCG/20 MCG;IN
     Route: 055
     Dates: start: 20050418, end: 20080418

REACTIONS (11)
  - ABDOMINAL PAIN [None]
  - AGITATION [None]
  - BRAIN OEDEMA [None]
  - HEPATOCELLULAR INJURY [None]
  - HYPONATRAEMIA [None]
  - INCORRECT DOSE ADMINISTERED [None]
  - INTRACRANIAL PRESSURE INCREASED [None]
  - LIVER INJURY [None]
  - PYREXIA [None]
  - RHABDOMYOLYSIS [None]
  - SOMNOLENCE [None]
